FAERS Safety Report 5081243-3 (Version None)
Quarter: 2006Q3

REPORT INFORMATION
  Report Type: 
  Country: None (occurrence: None)
  Receive Date: 20060816
  Receipt Date: 20060725
  Transmission Date: 20061208
  Serious: Yes (Death)
  Sender: FDA-Public Use
  Company Number: US-AMGEN-US187772

PATIENT
  Sex: Female

DRUGS (2)
  1. ENBREL [Suspect]
     Indication: RHEUMATOID ARTHRITIS
     Route: 058
     Dates: start: 20030805, end: 20050310
  2. METHOTREXATE [Concomitant]
     Dates: start: 19981212, end: 20040227

REACTIONS (2)
  - DEATH [None]
  - PANCREATIC CARCINOMA [None]
